FAERS Safety Report 5702968-X (Version None)
Quarter: 2008Q2

REPORT INFORMATION
  Report Type: 
  Country: None (occurrence: None)
  Receive Date: 20080411
  Receipt Date: 20080404
  Transmission Date: 20081010
  Serious: Yes (Hospitalization)
  Sender: FDA-Public Use
  Company Number: CA-ASTRAZENECA-2008UW06934

PATIENT
  Age: 52 Year
  Sex: Female

DRUGS (7)
  1. NEXIUM [Suspect]
     Route: 048
     Dates: start: 20071204
  2. NEXIUM [Suspect]
     Route: 048
     Dates: start: 20080101
  3. CRESTOR [Suspect]
     Route: 048
     Dates: start: 20071214
  4. ASAPHEN [Suspect]
     Dates: start: 20071214
  5. CHAMPIX [Suspect]
     Dates: start: 20071204
  6. NITROGLYCERIN [Suspect]
     Dates: start: 20071214
  7. NOVO-DILTAZEM [Suspect]
     Dates: start: 20071214

REACTIONS (2)
  - ANGINA PECTORIS [None]
  - PANCREATITIS [None]
